FAERS Safety Report 6638591-2 (Version None)
Quarter: 2010Q1

REPORT INFORMATION
  Report Type: 
  Country: None (occurrence: None)
  Receive Date: 20100317
  Receipt Date: 20100307
  Transmission Date: 20100710
  Serious: Yes (Other)
  Sender: FDA-Public Use
  Company Number: US-SANOFI-AVENTIS-2010SA013953

PATIENT
  Age: 60 Year
  Sex: Female

DRUGS (3)
  1. LANTUS [Suspect]
     Dosage: DOSE:10 UNIT(S)
     Route: 058
     Dates: start: 20091208
  2. LANTUS [Suspect]
     Dosage: DOSE:5 UNIT(S)
     Route: 058
  3. METFORMIN HYDROCHLORIDE [Concomitant]
     Dosage: DOSE:1000 UNIT(S)
     Route: 065
     Dates: start: 20091208

REACTIONS (3)
  - BLOOD GLUCOSE DECREASED [None]
  - BLOOD GLUCOSE INCREASED [None]
  - ORAL SURGERY [None]
